FAERS Safety Report 24272859 (Version 1)
Quarter: 2024Q3

REPORT INFORMATION
  Report Type: Spontaneous
  Country: KR (occurrence: KR)
  Receive Date: 20240902
  Receipt Date: 20240902
  Transmission Date: 20241016
  Serious: Yes (Other)
  Sender: AMGEN
  Company Number: KR-AMGEN-KORSP2024173150

PATIENT
  Age: 86 Year
  Sex: Female
  Weight: 56 kg

DRUGS (1)
  1. PROLIA [Suspect]
     Active Substance: DENOSUMAB
     Indication: Headache
     Dosage: 1 DOSAGE FORM (1 FORMULATION), QD
     Route: 065
     Dates: start: 20221227, end: 20221227

REACTIONS (4)
  - Angioedema [Recovered/Resolved]
  - Pruritus [Recovered/Resolved]
  - Flushing [Recovered/Resolved]
  - Rash [Recovered/Resolved]

NARRATIVE: CASE EVENT DATE: 20221227
